FAERS Safety Report 9964741 (Version 2)
Quarter: 2014Q1

REPORT INFORMATION
  Report Type: Report from Study
  Country: FR (occurrence: FR)
  Receive Date: 20140305
  Receipt Date: 20140305
  Transmission Date: 20141002
  Serious: Yes (Hospitalization)
  Sender: FDA-Public Use
  Company Number: PHHO2011FR09895

PATIENT
  Sex: 0

DRUGS (1)
  1. EVEROLIMUS [Suspect]
     Indication: HEPATOCELLULAR CARCINOMA
     Dosage: 7.5 MG, QD
     Route: 048
     Dates: start: 20110422, end: 20110530

REACTIONS (4)
  - General physical health deterioration [Not Recovered/Not Resolved]
  - Diabetic hyperosmolar coma [Not Recovered/Not Resolved]
  - Hyperammonaemia [Recovered/Resolved]
  - Asthenia [Not Recovered/Not Resolved]
